FAERS Safety Report 12606432 (Version 2)
Quarter: 2016Q3

REPORT INFORMATION
  Report Type: Spontaneous
  Country: DE (occurrence: DE)
  Receive Date: 20160729
  Receipt Date: 20160802
  Transmission Date: 20161109
  Serious: Yes (Disabling, Other)
  Sender: FDA-Public Use
  Company Number: DE-ABBVIE-16K-062-1685077-00

PATIENT
  Age: 51 Year
  Sex: Female
  Weight: 145 kg

DRUGS (5)
  1. AMLODIPINE [Concomitant]
     Active Substance: AMLODIPINE BESYLATE
     Indication: HYPERTENSION
     Route: 048
  2. HUMIRA [Suspect]
     Active Substance: ADALIMUMAB
     Indication: PSORIASIS
     Route: 058
     Dates: start: 2014
  3. NEBIVOLOL. [Concomitant]
     Active Substance: NEBIVOLOL
     Indication: HYPERTENSION
     Route: 048
  4. XARELTO [Concomitant]
     Active Substance: RIVAROXABAN
     Indication: ATRIAL FIBRILLATION
     Route: 048
  5. AMIODARON [Concomitant]
     Active Substance: AMIODARONE
     Indication: HYPERTENSION
     Route: 048

REACTIONS (2)
  - Melkersson-Rosenthal syndrome [Unknown]
  - Cheilitis granulomatosa [Unknown]

NARRATIVE: CASE EVENT DATE: 201510
